FAERS Safety Report 8928716 (Version 1)
Quarter: 2012Q4

REPORT INFORMATION
  Report Type: 
  Country: JP (occurrence: JP)
  Receive Date: 20121128
  Receipt Date: 20121128
  Transmission Date: 20130627
  Serious: Yes (Other)
  Sender: FDA-Public Use
  Company Number: JP-ASTELLAS-2012JP011035

PATIENT
  Sex: Female

DRUGS (2)
  1. PROGRAF [Suspect]
     Indication: RHEUMATOID ARTHRITIS
     Dosage: 0.5 mg, UID/QD
     Route: 048
  2. ITRIZOLE [Concomitant]
     Dosage: 200 mg, Unknown/D
     Route: 065

REACTIONS (3)
  - Intentional drug misuse [Unknown]
  - Fall [Unknown]
  - Upper limb fracture [Unknown]
